FAERS Safety Report 6847476-8 (Version None)
Quarter: 2010Q3

REPORT INFORMATION
  Report Type: 
  Country: None (occurrence: None)
  Receive Date: 20100716
  Receipt Date: 20100706
  Transmission Date: 20110219
  Serious: Yes (Other)
  Sender: FDA-Public Use
  Company Number: GB-PFIZER INC-2010084311

PATIENT
  Age: 58 Year
  Sex: Female

DRUGS (8)
  1. GABAPENTIN [Suspect]
     Dosage: 300 MG, 1X/DAY
     Route: 048
     Dates: start: 20100409, end: 20100526
  2. ALENDRONIC ACID [Concomitant]
     Dosage: UNK
  3. CITALOPRAM [Concomitant]
     Dosage: UNK
  4. DIAZEPAM [Concomitant]
     Dosage: UNK
  5. LEVOTHYROXINE [Concomitant]
     Dosage: UNK
  6. OMEPRAZOLE [Concomitant]
     Dosage: UNK
  7. PARACETAMOL [Concomitant]
     Dosage: UNK
  8. SUMATRIPTAN [Concomitant]
     Dosage: UNK

REACTIONS (2)
  - SLEEP DISORDER [None]
  - SUICIDAL IDEATION [None]
